FAERS Safety Report 6785643-2 (Version None)
Quarter: 2010Q2

REPORT INFORMATION
  Report Type: 
  Country: None (occurrence: None)
  Receive Date: 20100623
  Receipt Date: 20100616
  Transmission Date: 20101027
  Serious: Yes (Other)
  Sender: FDA-Public Use
  Company Number: JP-JNJFOC-20100606322

PATIENT
  Sex: Male

DRUGS (1)
  1. DORIPENEM MONOHYDRATE [Suspect]
     Indication: CORNEAL INFECTION
     Route: 042

REACTIONS (1)
  - RENAL IMPAIRMENT [None]
